FAERS Safety Report 22659666 (Version 1)
Quarter: 2023Q2

REPORT INFORMATION
  Report Type: Spontaneous
  Country: US (occurrence: US)
  Receive Date: 20230630
  Receipt Date: 20230630
  Transmission Date: 20230722
  Serious: Yes (Other)
  Sender: FDA-Public Use
  Company Number: US-LUPIN PHARMACEUTICALS INC.-2023-05084

PATIENT
  Age: 68 Year
  Sex: Female

DRUGS (1)
  1. ATORVASTATIN CALCIUM [Suspect]
     Active Substance: ATORVASTATIN CALCIUM
     Indication: Dyslipidaemia
     Dosage: UNK
     Route: 065

REACTIONS (3)
  - Cervical spinal stenosis [Recovered/Resolved]
  - Immune-mediated myositis [Recovered/Resolved]
  - Peripheral sensorimotor neuropathy [Recovered/Resolved]
